FAERS Safety Report 5502955-0 (Version None)
Quarter: 2007Q4

REPORT INFORMATION
  Report Type: 
  Country: None (occurrence: None)
  Receive Date: 20071031
  Receipt Date: 20071029
  Transmission Date: 20080405
  Serious: Yes (Hospitalization)
  Sender: FDA-Public Use
  Company Number: B0493091A

PATIENT
  Age: 86 Year
  Sex: Female

DRUGS (8)
  1. ZELITREX [Suspect]
     Indication: HERPES ZOSTER
     Dosage: 1000MG THREE TIMES PER DAY
     Route: 048
     Dates: start: 20070918, end: 20070920
  2. CRESTOR [Concomitant]
  3. ALPRESS [Concomitant]
  4. MONICOR LP [Concomitant]
  5. APROVEL [Concomitant]
  6. FLODIL LP [Concomitant]
  7. EUPRESSYL [Concomitant]
  8. KARDEGIC [Concomitant]

REACTIONS (5)
  - DISORIENTATION [None]
  - HALLUCINATION, AUDITORY [None]
  - HALLUCINATION, VISUAL [None]
  - LYMPHOCYTE COUNT INCREASED [None]
  - MENINGITIS [None]
